FAERS Safety Report 10211459 (Version 1)
Quarter: 2014Q2

REPORT INFORMATION
  Report Type: Spontaneous
  Country: US (occurrence: US)
  Receive Date: 20140602
  Receipt Date: 20140602
  Transmission Date: 20141212
  Serious: No
  Sender: FDA-Public Use
  Company Number: US-JNJFOC-20140600650

PATIENT
  Age: 52 Year
  Sex: Female
  Weight: 97.98 kg

DRUGS (9)
  1. DURAGESIC [Suspect]
     Indication: PAIN
     Route: 062
     Dates: start: 20140518
  2. EFFEXOR XR [Concomitant]
     Indication: HYPERHIDROSIS
     Route: 048
     Dates: start: 2011
  3. EFFEXOR XR [Concomitant]
     Indication: FIBROMYALGIA
     Route: 048
     Dates: start: 2011
  4. EFFEXOR XR [Concomitant]
     Indication: HOT FLUSH
     Route: 048
     Dates: start: 2011
  5. EFFEXOR XR [Concomitant]
     Indication: MENOPAUSAL SYMPTOMS
     Route: 048
     Dates: start: 2011
  6. CYMBALTA [Concomitant]
     Indication: FIBROMYALGIA
     Route: 048
     Dates: start: 201312
  7. MELOXICAM [Concomitant]
     Indication: INFLAMMATION
     Route: 048
     Dates: start: 2009
  8. SINGULAIR [Concomitant]
     Indication: MULTIPLE ALLERGIES
     Route: 048
     Dates: start: 2013
  9. NASOCORT [Concomitant]
     Indication: MULTIPLE ALLERGIES
     Route: 065
     Dates: start: 2004

REACTIONS (4)
  - Wrong technique in drug usage process [Recovered/Resolved]
  - Drug administered at inappropriate site [Unknown]
  - Drug dose omission [Unknown]
  - Product quality issue [Unknown]
